FAERS Safety Report 17575110 (Version 6)
Quarter: 2022Q2

REPORT INFORMATION
  Report Type: Report from Study
  Country: GB (occurrence: GB)
  Receive Date: 20200324
  Receipt Date: 20220616
  Transmission Date: 20220720
  Serious: Yes (Congenital Anomaly)
  Sender: FDA-Public Use
  Company Number: GB-AUROBINDO-AUR-APL-2020-013967

PATIENT
  Sex: Male

DRUGS (5)
  1. NEVIRAPINE [Suspect]
     Active Substance: NEVIRAPINE
     Indication: HIV infection
     Dosage: 400 MILLIGRAM, ONCE A DAY
     Route: 064
  2. NEVIRAPINE [Suspect]
     Active Substance: NEVIRAPINE
     Dosage: 400 MILLIGRAM, ONCE A DAY (400 MILLIGRAM, DAILY (PARENTAL DOSE: 400 MG, QD)/MATERNAL DOSE: 400 MG/DA
     Route: 064
     Dates: start: 2011
  3. EMTRICITABINE\TENOFOVIR DISOPROXIL FUMARATE [Suspect]
     Active Substance: EMTRICITABINE\TENOFOVIR DISOPROXIL FUMARATE
     Indication: HIV infection
     Dosage: 1 DOSAGE FORM
     Route: 064
  4. EMTRICITABINE\TENOFOVIR DISOPROXIL FUMARATE [Suspect]
     Active Substance: EMTRICITABINE\TENOFOVIR DISOPROXIL FUMARATE
     Dosage: 400 MILLIGRAM
     Route: 064
  5. LOPINAVIR\RITONAVIR [Suspect]
     Active Substance: LOPINAVIR\RITONAVIR
     Indication: Product used for unknown indication
     Dosage: PRIOR TO CONCEPTION
     Route: 064

REACTIONS (4)
  - Developmental delay [Unknown]
  - Speech disorder developmental [Unknown]
  - Foetal exposure during pregnancy [Recovered/Resolved]
  - Speech disorder [Unknown]
